FAERS Safety Report 17367236 (Version 5)
Quarter: 2020Q3

REPORT INFORMATION
  Report Type: Spontaneous
  Country: US (occurrence: US)
  Receive Date: 20200204
  Receipt Date: 20200707
  Transmission Date: 20201102
  Serious: Yes (Other)
  Sender: FDA-Public Use
  Company Number: US-PFIZER INC-2018488633

PATIENT
  Age: 81 Year
  Sex: Female

DRUGS (3)
  1. LYRICA [Suspect]
     Active Substance: PREGABALIN
     Indication: CAROTID ARTERY STENOSIS
     Dosage: 200 MG, THREE TIMES A DAY (1 MDD 3, AS NEEDED)
     Route: 048
  2. LYRICA [Suspect]
     Active Substance: PREGABALIN
     Indication: SEIZURE
  3. LYRICA [Suspect]
     Active Substance: PREGABALIN
     Indication: CAROTID ARTERY OCCLUSION
     Dosage: 200 MG, THREE TIMES A DAY (1 MDD 3, AS NEEDED)
     Route: 048

REACTIONS (3)
  - Cerebral haemorrhage [Unknown]
  - Blindness [Unknown]
  - Cerebrovascular accident [Unknown]
